FAERS Safety Report 25512398 (Version 1)
Quarter: 2025Q3

REPORT INFORMATION
  Report Type: Spontaneous
  Country: US (occurrence: US)
  Receive Date: 20250703
  Receipt Date: 20250703
  Transmission Date: 20251020
  Serious: No
  Sender: RADIUS PHARM
  Company Number: US-RADIUS HEALTH INC.-2024US004976

PATIENT
  Sex: Male

DRUGS (1)
  1. TYMLOS [Suspect]
     Active Substance: ABALOPARATIDE
     Indication: Senile osteoporosis
     Route: 058

REACTIONS (5)
  - Palpitations [Unknown]
  - Product dose omission in error [Unknown]
  - Injection site haematoma [Not Recovered/Not Resolved]
  - Heart rate increased [Recovered/Resolved]
  - Abnormal faeces [Unknown]
